FAERS Safety Report 14308218 (Version 1)
Quarter: 2017Q4

REPORT INFORMATION
  Report Type: Spontaneous
  Country: DK (occurrence: DK)
  Receive Date: 20171220
  Receipt Date: 20171220
  Transmission Date: 20180321
  Serious: Yes (Life-Threatening, Hospitalization)
  Sender: FDA-Public Use
  Company Number: DK-CIPLA LTD.-2017DK25416

PATIENT

DRUGS (6)
  1. CENTYL MITE MED KALIUMKLORID [Concomitant]
     Indication: HYPERTENSION
     Dosage: 1 DF, PER DAY
     Route: 048
     Dates: start: 20170106
  2. AMLODIPIN KKRA [Concomitant]
     Indication: HYPERTENSION
     Dosage: 10 MG, PER DAY
     Route: 048
     Dates: start: 20170209
  3. KALEORID [Concomitant]
     Active Substance: POTASSIUM CHLORIDE
     Indication: HYPOKALAEMIA
     Dosage: 750 MG, PER DAY
     Route: 048
     Dates: start: 20161129
  4. CIRCADIN [Concomitant]
     Active Substance: MELATONIN
     Indication: INSOMNIA
     Dosage: 4 MG, PER DAY
     Route: 048
     Dates: start: 20161117, end: 20171031
  5. SERTRALINE [Suspect]
     Active Substance: SERTRALINE HYDROCHLORIDE
     Indication: DEPRESSION
     Dosage: 150 MG, PER DAY
     Route: 048
     Dates: start: 20170713, end: 20171010
  6. MABLET [Concomitant]
     Indication: VITAMIN SUPPLEMENTATION
     Dosage: 1 DF, PER DAY
     Route: 048
     Dates: start: 20161221

REACTIONS (1)
  - Parkinsonism [Recovering/Resolving]

NARRATIVE: CASE EVENT DATE: 201707
